FAERS Safety Report 20113999 (Version 2)
Quarter: 2021Q4

REPORT INFORMATION
  Report Type: Report from Study
  Country: US (occurrence: US)
  Receive Date: 20211125
  Receipt Date: 20211218
  Transmission Date: 20220303
  Serious: Yes (Hospitalization, Other)
  Sender: FDA-Public Use
  Company Number: US-TAKEDA-2021TUS074469

PATIENT
  Age: 1 Year
  Sex: Male
  Weight: 10.7 kg

DRUGS (7)
  1. TEDUGLUTIDE [Suspect]
     Active Substance: TEDUGLUTIDE
     Indication: Short-bowel syndrome
     Dosage: 0.5 MILLIGRAM, QD
     Route: 058
     Dates: start: 20211001, end: 20211207
  2. TEDUGLUTIDE [Suspect]
     Active Substance: TEDUGLUTIDE
     Indication: Short-bowel syndrome
     Dosage: 0.5 MILLIGRAM, QD
     Route: 058
     Dates: start: 20211001, end: 20211207
  3. TEDUGLUTIDE [Suspect]
     Active Substance: TEDUGLUTIDE
     Indication: Short-bowel syndrome
     Dosage: 0.5 MILLIGRAM, QD
     Route: 058
     Dates: start: 20211001, end: 20211207
  4. TEDUGLUTIDE [Suspect]
     Active Substance: TEDUGLUTIDE
     Indication: Short-bowel syndrome
     Dosage: 0.5 MILLIGRAM, QD
     Route: 058
     Dates: start: 20211001, end: 20211207
  5. CHOLESTYRAMINE [Concomitant]
     Active Substance: CHOLESTYRAMINE
     Indication: Diarrhoea
     Dosage: 250 MILLIGRAM, BID
     Route: 048
     Dates: start: 20210104
  6. IRON [Concomitant]
     Active Substance: IRON
     Indication: Anaemia
     Dosage: 15 MILLIGRAM, BID
     Route: 065
     Dates: start: 20210510, end: 20211129
  7. ENOXAPARIN [Concomitant]
     Active Substance: ENOXAPARIN
     Indication: Thrombosis
     Dosage: 5 MILLIGRAM, BID
     Route: 058
     Dates: start: 20210131, end: 20211207

REACTIONS (1)
  - Device related bacteraemia [Recovered/Resolved]

NARRATIVE: CASE EVENT DATE: 20211113
